FAERS Safety Report 8182985-3 (Version None)
Quarter: 2012Q1

REPORT INFORMATION
  Report Type: 
  Country: None (occurrence: None)
  Receive Date: 20120305
  Receipt Date: 20111205
  Transmission Date: 20120608
  Serious: No
  Sender: FDA-Public Use
  Company Number: US-BRISTOL-MYERS SQUIBB COMPANY-16270720

PATIENT

DRUGS (1)
  1. KOMBIGLYZE XR [Suspect]
     Dosage: 1DF:2.5MG/1000MG WITH DIRECTIONS FOR 1 1/2 TABLETS

REACTIONS (1)
  - DRUG PRESCRIBING ERROR [None]
